FAERS Safety Report 7313908-4 (Version None)
Quarter: 2011Q1

REPORT INFORMATION
  Report Type: 
  Country: None (occurrence: None)
  Receive Date: 20110225
  Receipt Date: 20110215
  Transmission Date: 20110831
  Serious: Yes (Other)
  Sender: FDA-Public Use
  Company Number: FR-EISAI INC-E3810-04153-SPO-FR

PATIENT
  Age: 69 Year
  Sex: Female

DRUGS (1)
  1. PARIET (RABEPRAZOLE) [Suspect]
     Route: 048
     Dates: start: 20100805, end: 20101021

REACTIONS (29)
  - BALANCE DISORDER [None]
  - PHARYNGEAL ERYTHEMA [None]
  - IMPAIRED DRIVING ABILITY [None]
  - FATIGUE [None]
  - MUSCLE SPASMS [None]
  - OEDEMA PERIPHERAL [None]
  - ASTHENIA [None]
  - FEELING OF BODY TEMPERATURE CHANGE [None]
  - SUICIDAL IDEATION [None]
  - PAIN [None]
  - MUSCULOSKELETAL STIFFNESS [None]
  - COUGH [None]
  - RHINORRHOEA [None]
  - DECREASED APPETITE [None]
  - SOMNOLENCE [None]
  - FOOD AVERSION [None]
  - GASTROOESOPHAGEAL REFLUX DISEASE [None]
  - BREAST OEDEMA [None]
  - SUICIDE ATTEMPT [None]
  - VISUAL IMPAIRMENT [None]
  - AMNESIA [None]
  - PRODUCTIVE COUGH [None]
  - UPPER AIRWAY OBSTRUCTION [None]
  - DISTURBANCE IN ATTENTION [None]
  - HEADACHE [None]
  - PYREXIA [None]
  - DEPRESSION [None]
  - VERTIGO [None]
  - MYALGIA [None]
